FAERS Safety Report 19106125 (Version 1)
Quarter: 2021Q2

REPORT INFORMATION
  Report Type: Spontaneous
  Country: GB (occurrence: GB)
  Receive Date: 20210408
  Receipt Date: 20210408
  Transmission Date: 20210717
  Serious: Yes (Disabling)
  Sender: FDA-Public Use
  Company Number: GB-SUN PHARMACEUTICAL INDUSTRIES LTD-2021RR-289035

PATIENT
  Age: 22 Year
  Sex: Female

DRUGS (1)
  1. CITALOPRAM [Suspect]
     Active Substance: CITALOPRAM HYDROBROMIDE
     Indication: ILL-DEFINED DISORDER
     Dosage: 20 MILLIGRAM, DAILY
     Route: 048

REACTIONS (4)
  - Malaise [Unknown]
  - Product dispensing error [Unknown]
  - Decreased appetite [Unknown]
  - Dizziness [Unknown]
